FAERS Safety Report 9934474 (Version 1)
Quarter: 2014Q1

REPORT INFORMATION
  Report Type: Spontaneous
  Country: US (occurrence: US)
  Receive Date: 20140228
  Receipt Date: 20140228
  Transmission Date: 20141002
  Serious: Yes (Other)
  Sender: FDA-Public Use
  Company Number: US-ALLERGAN-1403645US

PATIENT
  Age: 53 Year
  Sex: Female

DRUGS (4)
  1. BOTOX [Suspect]
     Indication: PRODUCT USED FOR UNKNOWN INDICATION
     Dosage: UNK
     Dates: start: 20130919, end: 20130919
  2. JUVEDERM [Suspect]
     Indication: SKIN WRINKLING
     Dosage: UNK
     Dates: start: 20130919, end: 20130919
  3. JUVEDERM [Suspect]
     Indication: SKIN WRINKLING
  4. PAXIL                              /00500401/ [Concomitant]
     Indication: DEPRESSION

REACTIONS (4)
  - Lymphadenopathy [Unknown]
  - Injection site granuloma [Unknown]
  - Oedema [Unknown]
  - Pain [Unknown]
